FAERS Safety Report 6596957-3 (Version None)
Quarter: 2010Q1

REPORT INFORMATION
  Report Type: 
  Country: None (occurrence: None)
  Receive Date: 20100222
  Receipt Date: 20100222
  Transmission Date: 20100710
  Serious: Yes (Other)
  Sender: FDA-Public Use
  Company Number: None

PATIENT
  Age: 35 Year
  Sex: Male
  Weight: 83.9154 kg

DRUGS (2)
  1. BUPROPION HCL [Suspect]
     Indication: DEPRESSION
     Dosage: 1 TABLET DAILY PO
     Route: 048
     Dates: start: 20100210, end: 20100210
  2. BUPROPION HCL [Suspect]

REACTIONS (8)
  - AGGRESSION [None]
  - ANXIETY [None]
  - ASTHENIA [None]
  - INSOMNIA [None]
  - PANIC DISORDER [None]
  - PARANOIA [None]
  - PRODUCT SUBSTITUTION ISSUE [None]
  - VISION BLURRED [None]
